FAERS Safety Report 7661432-1 (Version None)
Quarter: 2011Q3

REPORT INFORMATION
  Report Type: 
  Country: None (occurrence: None)
  Receive Date: 20110805
  Receipt Date: 20101014
  Transmission Date: 20111222
  Serious: No
  Sender: FDA-Public Use
  Company Number: US-ABBOTT-10P-163-0679019-00

PATIENT
  Sex: Female
  Weight: 81.72 kg

DRUGS (14)
  1. LUNESTA [Concomitant]
     Indication: INSOMNIA
  2. VERAMIST [Concomitant]
     Indication: HYPERSENSITIVITY
  3. CLARINEX-D [Concomitant]
     Indication: HYPERSENSITIVITY
  4. SYNTHROID [Concomitant]
     Indication: HYPOTHYROIDISM
  5. ASPIRIN [Concomitant]
     Indication: PRODUCT USED FOR UNKNOWN INDICATION
     Dosage: 30 MINUTES BEFORE TAKING NIASPAN
     Dates: end: 20101010
  6. NIASPAN [Suspect]
     Dates: start: 20100901, end: 20101010
  7. PROTONIX [Concomitant]
     Indication: GASTROOESOPHAGEAL REFLUX DISEASE
  8. LOVAZA [Concomitant]
     Indication: BLOOD CHOLESTEROL INCREASED
  9. HYOSCYAMINE [Concomitant]
     Indication: IRRITABLE BOWEL SYNDROME
  10. NIASPAN [Suspect]
     Indication: BLOOD CHOLESTEROL INCREASED
     Dates: start: 20100801, end: 20100801
  11. FIBER [Concomitant]
     Indication: PRODUCT USED FOR UNKNOWN INDICATION
     Dosage: PILLS
  12. LEXAPRO [Concomitant]
     Indication: POSTPARTUM DEPRESSION
  13. PROBIOTICS [Concomitant]
     Indication: PRODUCT USED FOR UNKNOWN INDICATION
  14. PATANOL [Concomitant]
     Indication: HYPERSENSITIVITY
     Route: 047

REACTIONS (7)
  - FEELING HOT [None]
  - FATIGUE [None]
  - VISUAL IMPAIRMENT [None]
  - UNRESPONSIVE TO STIMULI [None]
  - PRURITUS [None]
  - NAUSEA [None]
  - RASH [None]
